FAERS Safety Report 8304854-8 (Version None)
Quarter: 2012Q2

REPORT INFORMATION
  Report Type: 
  Country: None (occurrence: None)
  Receive Date: 20120423
  Receipt Date: 20120418
  Transmission Date: 20120825
  Serious: Yes (Life-Threatening, Hospitalization, Other)
  Sender: FDA-Public Use
  Company Number: JP-PFIZER INC-2012096531

PATIENT
  Age: 84 Year
  Sex: Female

DRUGS (2)
  1. SPIRONOLACTONE [Suspect]
     Dosage: 25 MG/DAY
     Route: 048
  2. ALISKIREN FUMARATE [Suspect]
     Dosage: 150 MG/DAY
     Route: 048

REACTIONS (4)
  - HYPERKALAEMIA [None]
  - SPINAL FRACTURE [None]
  - ELECTROCARDIOGRAM QRS COMPLEX PROLONGED [None]
  - METABOLIC ACIDOSIS [None]
